FAERS Safety Report 8266899-6 (Version None)
Quarter: 2012Q2

REPORT INFORMATION
  Report Type: 
  Country: None (occurrence: None)
  Receive Date: 20120404
  Receipt Date: 20120404
  Transmission Date: 20120825
  Serious: No
  Sender: FDA-Public Use
  Company Number: None

PATIENT
  Sex: Female
  Weight: 60.782 kg

DRUGS (2)
  1. RESTASIS [Suspect]
     Indication: DRY EYE
     Dosage: 2X DAILY DROPS
     Route: 047
     Dates: start: 20111101
  2. RESTASIS [Suspect]
     Indication: DRY EYE
     Dosage: 2X DAILY DROPS
     Route: 047
     Dates: start: 20120201

REACTIONS (6)
  - INSTILLATION SITE ERYTHEMA [None]
  - FOREIGN BODY SENSATION IN EYES [None]
  - INSTILLATION SITE IRRITATION [None]
  - CONDITION AGGRAVATED [None]
  - VISION BLURRED [None]
  - INSTILLATION SITE PAIN [None]
